FAERS Safety Report 6258905-5 (Version None)
Quarter: 2009Q3

REPORT INFORMATION
  Report Type: 
  Country: None (occurrence: None)
  Receive Date: 20090707
  Receipt Date: 20090703
  Transmission Date: 20100115
  Serious: Yes (Hospitalization)
  Sender: FDA-Public Use
  Company Number: FR-WYE-G03981609

PATIENT

DRUGS (1)
  1. IBUPROFEN [Suspect]
     Indication: HEADACHE
     Route: 048
     Dates: start: 20090629, end: 20090630

REACTIONS (2)
  - ACUTE SINUSITIS [None]
  - EXPIRED DRUG ADMINISTERED [None]
